FAERS Safety Report 7305778-5 (Version None)
Quarter: 2011Q1

REPORT INFORMATION
  Report Type: 
  Country: None (occurrence: None)
  Receive Date: 20110222
  Receipt Date: 20110211
  Transmission Date: 20110831
  Serious: Yes (Hospitalization, Disabling)
  Sender: FDA-Public Use
  Company Number: B0700864A

PATIENT
  Sex: Male
  Weight: 90.3 kg

DRUGS (4)
  1. VOTRIENT [Suspect]
     Indication: NEOPLASM
     Dosage: 200MG PER DAY
     Route: 048
     Dates: start: 20110131, end: 20110218
  2. OXYCODON [Concomitant]
     Indication: PAIN
     Dosage: 10MG TWICE PER DAY
     Route: 048
  3. HOLOXAN [Suspect]
     Indication: NEOPLASM
     Route: 042
     Dates: start: 20110207, end: 20110209
  4. DIAZEPAM [Concomitant]
     Indication: NAUSEA
     Dosage: 5MG AS REQUIRED
     Route: 048

REACTIONS (1)
  - ENCEPHALOPATHY [None]
